FAERS Safety Report 5543804-4 (Version None)
Quarter: 2007Q4

REPORT INFORMATION
  Report Type: 
  Country: None (occurrence: None)
  Receive Date: 20071210
  Receipt Date: 20071204
  Transmission Date: 20080405
  Serious: Yes (Other)
  Sender: FDA-Public Use
  Company Number: US-BOEHRINGER INGELHEIM PHARMACEUTICALS, INC.-2007-BP-25587BP

PATIENT

DRUGS (2)
  1. AGGRENOX [Suspect]
  2. PLAVIX [Suspect]
     Indication: ANGIOPATHY

REACTIONS (1)
  - GASTROINTESTINAL HAEMORRHAGE [None]
